FAERS Safety Report 8073029-2 (Version None)
Quarter: 2011Q4

REPORT INFORMATION
  Report Type: 
  Country: None (occurrence: None)
  Receive Date: 20111221
  Receipt Date: 20101104
  Transmission Date: 20120403
  Serious: Yes (Hospitalization)
  Sender: FDA-Public Use
  Company Number: PHHY2009US66456

PATIENT
  Age: 55 Year
  Sex: Female

DRUGS (10)
  1. EXJADE [Suspect]
     Dosage: 1500 MG, QD, ORAL
     Route: 048
     Dates: start: 20100409
  2. HYDREA [Concomitant]
  3. TORADEL (KETOROLAC TROMETHAMINE) [Concomitant]
  4. METFORMIN HCL [Concomitant]
  5. AMARYL [Concomitant]
  6. ASPIRIN [Concomitant]
  7. LISINOPRIL [Concomitant]
  8. NORVASC [Concomitant]
  9. METOPROLOL TARTRATE [Concomitant]
  10. PERCOCET [Concomitant]

REACTIONS (2)
  - PAIN [None]
  - SICKLE CELL ANAEMIA WITH CRISIS [None]
